FAERS Safety Report 8459906 (Version 2)
Quarter: 2013Q2

REPORT INFORMATION
  Report Type: Spontaneous
  Country: US (occurrence: US)
  Receive Date: 20120314
  Receipt Date: 20130404
  Transmission Date: 20140414
  Serious: No
  Sender: FDA-Public Use
  Company Number: US-ASTRAZENECA-2011SE73836

PATIENT
  Sex: Male

DRUGS (1)
  1. TOPROL XL [Suspect]
     Indication: BLOOD PRESSURE
     Route: 048

REACTIONS (7)
  - Blood pressure increased [Unknown]
  - Stress [Unknown]
  - Epistaxis [Unknown]
  - Panic attack [Unknown]
  - Headache [Unknown]
  - Drug dose omission [Unknown]
  - Incorrect dose administered [Unknown]
